FAERS Safety Report 6293553-2 (Version None)
Quarter: 2009Q3

REPORT INFORMATION
  Report Type: 
  Country: None (occurrence: None)
  Receive Date: 20090803
  Receipt Date: 20090730
  Transmission Date: 20100115
  Serious: Yes (Congenital Anomaly, Other)
  Sender: FDA-Public Use
  Company Number: GB-BRISTOL-MYERS SQUIBB COMPANY-14692123

PATIENT

DRUGS (5)
  1. EFAVIRENZ [Suspect]
     Indication: HIV INFECTION
     Route: 064
     Dates: start: 20070101, end: 20070816
  2. COMBIVIR [Suspect]
     Indication: HIV INFECTION
     Route: 064
     Dates: start: 20070920
  3. KALETRA [Suspect]
     Indication: HIV INFECTION
     Route: 064
     Dates: start: 20070920
  4. KIVEXA [Suspect]
     Indication: HIV INFECTION
     Route: 064
     Dates: start: 20070101, end: 20070901
  5. VIRAMUNE [Suspect]
     Indication: HIV INFECTION
     Route: 064
     Dates: start: 20070801, end: 20070905

REACTIONS (6)
  - CARDIAC MALPOSITION [None]
  - DEFORMITY THORAX [None]
  - DIAPHRAGMATIC APLASIA [None]
  - EXOMPHALOS [None]
  - HEPATIC DISPLACEMENT [None]
  - MICROCEPHALY [None]
